FAERS Safety Report 8103773-X (Version None)
Quarter: 2011Q4

REPORT INFORMATION
  Report Type: 
  Country: None (occurrence: None)
  Receive Date: 20111222
  Receipt Date: 20110914
  Transmission Date: 20120403
  Serious: Yes (Hospitalization)
  Sender: FDA-Public Use
  Company Number: UTC-009766

PATIENT
  Age: 55 Year
  Sex: Female

DRUGS (3)
  1. PLAVIX (COPIDOGREL) [Concomitant]
  2. TYVASO [Suspect]
     Indication: PULMONARY ARTERIAL HYPERTENSION
     Dosage: 216 MCG (54 MCG, 4 IN 1 D), INHALATION
     Route: 055
     Dates: start: 20110315
  3. METOPROLOL TARTRATE [Concomitant]

REACTIONS (3)
  - MITRAL VALVE INCOMPETENCE [None]
  - LEFT VENTRICULAR FAILURE [None]
  - RIGHT VENTRICULAR FAILURE [None]
